FAERS Safety Report 9554352 (Version 1)
Quarter: 2013Q3

REPORT INFORMATION
  Report Type: Spontaneous
  Country: US (occurrence: None)
  Receive Date: 20130712
  Receipt Date: 20130712
  Transmission Date: 20140515
  Serious: Yes (Hospitalization)
  Sender: FDA-Public Use
  Company Number: FK201202214

PATIENT
  Age: 70 Year
  Sex: Female

DRUGS (3)
  1. IFOSFAMIDE [Suspect]
     Indication: CHEMOTHERAPY
     Dates: start: 201207, end: 201207
  2. VIIBRYD [Suspect]
     Indication: DEPRESSION
     Dates: start: 201207, end: 201207
  3. DILAUDID [Suspect]
     Dates: start: 201207, end: 201207

REACTIONS (2)
  - Confusional state [None]
  - Incoherent [None]
